FAERS Safety Report 6043413-7 (Version None)
Quarter: 2009Q1

REPORT INFORMATION
  Report Type: 
  Country: None (occurrence: None)
  Receive Date: 20090115
  Receipt Date: 20090115
  Transmission Date: 20090719
  Serious: Yes (Life-Threatening, Hospitalization)
  Sender: FDA-Public Use
  Company Number: None

PATIENT
  Age: 38 Year
  Sex: Male

DRUGS (1)
  1. CLOZARIL [Suspect]
     Indication: DELIRIUM
     Dosage: 300MG STAT PO
     Route: 048

REACTIONS (2)
  - PNEUMONIA ASPIRATION [None]
  - RESPIRATORY DISTRESS [None]
